FAERS Safety Report 6041571-1 (Version None)
Quarter: 2009Q1

REPORT INFORMATION
  Report Type: 
  Country: None (occurrence: None)
  Receive Date: 20090116
  Receipt Date: 20090109
  Transmission Date: 20090719
  Serious: Yes (Hospitalization)
  Sender: FDA-Public Use
  Company Number: A0763070A

PATIENT
  Age: 61 Year
  Sex: Male
  Weight: 74.3 kg

DRUGS (3)
  1. PAZOPANIB [Suspect]
     Dosage: 400MG PER DAY
     Route: 048
     Dates: start: 20081230
  2. LAPATINIB [Suspect]
     Dosage: 1000MG PER DAY
     Route: 048
     Dates: start: 20081230
  3. PACLITAXEL [Suspect]
     Dosage: 80MGM2 WEEKLY
     Route: 042
     Dates: start: 20081229

REACTIONS (3)
  - CHEST PAIN [None]
  - HAEMOPTYSIS [None]
  - THROMBOSIS [None]
